FAERS Safety Report 15264485 (Version 1)
Quarter: 2018Q3

REPORT INFORMATION
  Report Type: Spontaneous
  Country: US (occurrence: US)
  Receive Date: 20180722
  Receipt Date: 20180722
  Transmission Date: 20181010
  Serious: Yes (Other)
  Sender: FDA-Public Use
  Company Number: None

PATIENT
  Age: 78 Year
  Sex: Male
  Weight: 64.86 kg

DRUGS (1)
  1. SACUBITRIL/VALSARTAN [Suspect]
     Active Substance: SACUBITRIL\VALSARTAN
     Indication: HYPERTENSION
     Dates: start: 20180409, end: 20180529

REACTIONS (2)
  - Hypotension [None]
  - Dizziness [None]

NARRATIVE: CASE EVENT DATE: 20180531
